APPROVED DRUG PRODUCT: VIVITROL
Active Ingredient: NALTREXONE
Strength: 380MG/VIAL
Dosage Form/Route: FOR SUSPENSION, EXTENDED RELEASE;INTRAMUSCULAR
Application: N021897 | Product #001
Applicant: ALKERMES INC
Approved: Apr 13, 2006 | RLD: Yes | RS: Yes | Type: RX

PATENTS:
Patent 7919499 | Expires: Oct 15, 2029
Patent 7919499 | Expires: Oct 15, 2029